FAERS Safety Report 13695776 (Version 1)
Quarter: 2017Q2

REPORT INFORMATION
  Report Type: Spontaneous
  Country: IT (occurrence: IT)
  Receive Date: 20170627
  Receipt Date: 20170627
  Transmission Date: 20170830
  Serious: Yes (Hospitalization)
  Sender: FDA-Public Use
  Company Number: PHHY2017IT091438

PATIENT
  Age: 51 Year
  Sex: Female

DRUGS (1)
  1. KETOROLAC [Suspect]
     Active Substance: KETOROLAC\KETOROLAC TROMETHAMINE
     Indication: NECK PAIN
     Dosage: 30 MG, UNK
     Route: 030

REACTIONS (4)
  - Haematemesis [Recovering/Resolving]
  - Product use in unapproved indication [Unknown]
  - Duodenal ulcer [Recovering/Resolving]
  - Incorrect drug administration duration [Unknown]
